FAERS Safety Report 10072452 (Version 9)
Quarter: 2015Q2

REPORT INFORMATION
  Report Type: Report from Study
  Country: US (occurrence: US)
  Receive Date: 20140411
  Receipt Date: 20150415
  Transmission Date: 20150821
  Serious: Yes (Hospitalization, Other)
  Sender: FDA-Public Use
  Company Number: US-SA-2014SA034579

PATIENT
  Age: 54 Year
  Sex: Female

DRUGS (9)
  1. AUBAGIO [Suspect]
     Active Substance: TERIFLUNOMIDE
     Indication: MULTIPLE SCLEROSIS
     Route: 048
     Dates: start: 20130313, end: 20140313
  2. BACLOFEN. [Concomitant]
     Active Substance: BACLOFEN
  3. AUBAGIO [Suspect]
     Active Substance: TERIFLUNOMIDE
     Indication: MULTIPLE SCLEROSIS
     Route: 048
     Dates: start: 20141129, end: 20150304
  4. FUROSEMIDE. [Concomitant]
     Active Substance: FUROSEMIDE
  5. DOCUSATE/SENNA ALEXANDRINA [Concomitant]
     Dosage: DOSE:1 UNIT(S)
  6. DONEPEZIL [Concomitant]
     Active Substance: DONEPEZIL
  7. IRON [Concomitant]
     Active Substance: IRON
  8. LEVOTHYROXINE [Concomitant]
     Active Substance: LEVOTHYROXINE
     Indication: THYROID DISORDER
  9. AMPYRA [Concomitant]
     Active Substance: DALFAMPRIDINE
     Dates: start: 20131001

REACTIONS (13)
  - Folliculitis [Recovering/Resolving]
  - Bronchitis [Unknown]
  - Scar [Not Recovered/Not Resolved]
  - Central nervous system lesion [Unknown]
  - Eating disorder [Recovering/Resolving]
  - Subcutaneous abscess [Recovered/Resolved with Sequelae]
  - Skin ulcer [Not Recovered/Not Resolved]
  - Pruritus [Not Recovered/Not Resolved]
  - Keloid scar [Recovering/Resolving]
  - Respiratory disorder [Recovered/Resolved]
  - Unevaluable event [Unknown]
  - Vomiting [Recovering/Resolving]
  - White blood cell count increased [Recovered/Resolved]

NARRATIVE: CASE EVENT DATE: 201401
